APPROVED DRUG PRODUCT: HYDRODIURIL
Active Ingredient: HYDROCHLOROTHIAZIDE
Strength: 100MG **Federal Register determination that product was not discontinued or withdrawn for safety or effectiveness reasons**
Dosage Form/Route: TABLET;ORAL
Application: N011835 | Product #007
Applicant: MERCK AND CO INC
Approved: Approved Prior to Jan 1, 1982 | RLD: Yes | RS: No | Type: DISCN